FAERS Safety Report 7827824-2 (Version None)
Quarter: 2011Q4

REPORT INFORMATION
  Report Type: 
  Country: None (occurrence: None)
  Receive Date: 20111020
  Receipt Date: 20111012
  Transmission Date: 20120403
  Serious: Yes (Other)
  Sender: FDA-Public Use
  Company Number: JP-BAYER-2011-098301

PATIENT

DRUGS (9)
  1. SOLU-MEDROL [Concomitant]
     Indication: GLOMERULONEPHRITIS CHRONIC
     Dosage: DAILY DOSE 500 MG
     Route: 041
  2. PREDNISOLONE [Concomitant]
     Dosage: DAILY DOSE 25 MG
     Route: 065
  3. PREDNISOLONE [Concomitant]
     Dosage: DAILY DOSE 15 MG
     Route: 065
  4. PREDNISOLONE [Concomitant]
     Dosage: DAILY DOSE 10 MG
     Route: 065
  5. PREDNISOLONE [Concomitant]
     Indication: GLOMERULONEPHRITIS CHRONIC
     Dosage: DAILY DOSE 30 MG
     Route: 065
  6. REBAMIPIDE [Concomitant]
     Indication: ABDOMINAL DISCOMFORT
     Dosage: 1 DF, TID
     Route: 048
  7. ASPIRIN [Suspect]
     Dosage: UNK
     Route: 048
  8. PREDNISOLONE [Concomitant]
     Dosage: DAILY DOSE 5 MG
     Route: 065
  9. PREDNISOLONE [Concomitant]
     Dosage: DAILY DOSE 20 MG
     Route: 065

REACTIONS (1)
  - GASTRIC ULCER [None]
